FAERS Safety Report 7177684-0 (Version None)
Quarter: 2010Q4

REPORT INFORMATION
  Report Type: 
  Country: None (occurrence: None)
  Receive Date: 20101123
  Receipt Date: 20100728
  Transmission Date: 20110411
  Serious: No
  Sender: FDA-Public Use
  Company Number: 016544

PATIENT
  Sex: Male
  Weight: 92.5 kg

DRUGS (12)
  1. CIMZIA [Suspect]
     Indication: CROHN'S DISEASE
     Dosage: (400 MG 1X/MONTH SUBCUTANEOUS)
     Route: 058
     Dates: start: 20100501
  2. OMEPRAZOLE [Concomitant]
  3. CITRACAL + D [Concomitant]
  4. CENTRUM SILVER /01292501/ [Concomitant]
  5. SIMETHICONE [Concomitant]
  6. VITAMIN B12 /00056201/ [Concomitant]
  7. FERROUS SULFATE [Concomitant]
  8. MAGNESIUM OXIDE [Concomitant]
  9. TRAZODONE HYDROCHLORIDE [Concomitant]
  10. BUPROPION [Concomitant]
  11. OXYCODONE [Concomitant]
  12. OXYCONTIN [Concomitant]

REACTIONS (1)
  - FATIGUE [None]
